FAERS Safety Report 7959067-6 (Version None)
Quarter: 2011Q4

REPORT INFORMATION
  Report Type: 
  Country: None (occurrence: None)
  Receive Date: 20111206
  Receipt Date: 20111011
  Transmission Date: 20120403
  Serious: Yes (Other)
  Sender: FDA-Public Use
  Company Number: US-GLAXOSMITHKLINE-A0948644A

PATIENT
  Age: 20 Year
  Sex: Male

DRUGS (3)
  1. LITHIUM CARBONATE [Concomitant]
     Dosage: 900MG AT NIGHT
     Route: 048
     Dates: start: 20100813, end: 20110920
  2. GABAPENTIN [Concomitant]
     Dosage: 900MG PER DAY
     Route: 048
     Dates: start: 20100406, end: 20110626
  3. LAMICTAL [Suspect]
     Indication: BIPOLAR DISORDER
     Dosage: 200MG SINGLE DOSE
     Route: 048
     Dates: start: 20110927, end: 20110928

REACTIONS (3)
  - DRUG HYPERSENSITIVITY [None]
  - DERMATITIS CONTACT [None]
  - RASH GENERALISED [None]
